FAERS Safety Report 22023064 (Version 1)
Quarter: 2023Q1

REPORT INFORMATION
  Report Type: Spontaneous
  Country: IT (occurrence: IT)
  Receive Date: 20230222
  Receipt Date: 20230222
  Transmission Date: 20230418
  Serious: Yes (Hospitalization, Other)
  Sender: FDA-Public Use
  Company Number: IT-MINISAL02-909102

PATIENT
  Age: 76 Year
  Sex: Male

DRUGS (3)
  1. LORAZEPAM [Suspect]
     Active Substance: LORAZEPAM
     Indication: Anxiety
     Dosage: 10 MILLIGRAM, 1 TOTAL (DOSAGE: 10 UNIT OF MEASURE: MILLIGRAMS
     Route: 048
  2. LERCANIDIPINE [Suspect]
     Active Substance: LERCANIDIPINE
     Indication: Hypertension
     Dosage: 100 MILLIGRAM (DOSAGE: 100UNIT OF MEASUREMENT: MILLIGRAMS
     Route: 048
  3. RAMIPRIL [Suspect]
     Active Substance: RAMIPRIL
     Indication: Hypertension
     Dosage: 50 MILLIGRAM (DOSAGE: 50UNIT OF MEASUREMENT: MILLIGRAMS
     Route: 048

REACTIONS (4)
  - Drug abuse [Recovering/Resolving]
  - Depressed mood [Recovering/Resolving]
  - Drug interaction [Recovering/Resolving]
  - Sopor [Recovering/Resolving]

NARRATIVE: CASE EVENT DATE: 20220724
